FAERS Safety Report 7294696-7 (Version None)
Quarter: 2011Q1

REPORT INFORMATION
  Report Type: 
  Country: None (occurrence: None)
  Receive Date: 20110207
  Receipt Date: 20110125
  Transmission Date: 20110831
  Serious: Yes (Death, Hospitalization)
  Sender: FDA-Public Use
  Company Number: KADN20110012

PATIENT
  Age: 54 Year
  Sex: Female

DRUGS (11)
  1. CLONAZEPAM [Concomitant]
  2. AMITRIPTYLINE HCL [Suspect]
     Indication: PRODUCT USED FOR UNKNOWN INDICATION
     Dosage: PER ORAL
     Route: 048
     Dates: end: 20090101
  3. GABAPENTIN [Concomitant]
  4. NAPROXEN [Concomitant]
  5. LISINOPRIL [Concomitant]
  6. PREMARIN [Concomitant]
  7. MORPHINE SULFATE [Suspect]
     Indication: PRODUCT USED FOR UNKNOWN INDICATION
     Dosage: PER ORAL
     Route: 048
     Dates: end: 20090101
  8. HYDROCHLOROTHIAZIDE [Concomitant]
  9. MORPHINE 10 MG SUSTAINED RELEASE [Suspect]
     Indication: PRODUCT USED FOR UNKNOWN INDICATION
     Dosage: PER ORAL
     Route: 048
     Dates: end: 20090101
  10. TRAZODONE HCL [Suspect]
     Indication: PRODUCT USED FOR UNKNOWN INDICATION
     Dosage: PER ORAL
     Route: 048
     Dates: end: 20090101
  11. SYNTHROID [Concomitant]

REACTIONS (27)
  - UNRESPONSIVE TO STIMULI [None]
  - BLOOD PH DECREASED [None]
  - PCO2 INCREASED [None]
  - ANION GAP INCREASED [None]
  - NO THERAPEUTIC RESPONSE [None]
  - RALES [None]
  - PO2 INCREASED [None]
  - RHABDOMYOLYSIS [None]
  - BLOOD LACTIC ACID INCREASED [None]
  - BLOOD UREA INCREASED [None]
  - BLOOD CREATININE INCREASED [None]
  - LUNG INFILTRATION [None]
  - PULMONARY OEDEMA [None]
  - BLOOD BICARBONATE DECREASED [None]
  - COMPLETED SUICIDE [None]
  - VENTRICULAR FIBRILLATION [None]
  - PULSE ABNORMAL [None]
  - HYPOTENSION [None]
  - HEART RATE INCREASED [None]
  - HYPERDYNAMIC LEFT VENTRICLE [None]
  - RESPIRATORY RATE INCREASED [None]
  - PERIPHERAL COLDNESS [None]
  - CHEST DISCOMFORT [None]
  - PNEUMONIA [None]
  - HYPOVENTILATION [None]
  - CARDIAC ARREST [None]
  - BLOOD CHLORIDE DECREASED [None]
